FAERS Safety Report 21309328 (Version 2)
Quarter: 2022Q3

REPORT INFORMATION
  Report Type: Spontaneous
  Country: US (occurrence: US)
  Receive Date: 20220908
  Receipt Date: 20220927
  Transmission Date: 20221027
  Serious: Yes (Other)
  Sender: FDA-Public Use
  Company Number: US-BRAINTREE LABORATORIES, INC.-2021BTE00770

PATIENT
  Sex: Male

DRUGS (1)
  1. SUPREP BOWEL PREP [Suspect]
     Active Substance: MAGNESIUM SULFATE\POTASSIUM SULFATE\SODIUM SULFATE
     Dosage: 1 X 6 OZ. BOTTLE, 1X
     Dates: start: 20210913, end: 20210913

REACTIONS (11)
  - Blood pressure increased [Recovered/Resolved]
  - Hypersensitivity [Unknown]
  - Feeling hot [Unknown]
  - Cardiac disorder [Unknown]
  - Chest pain [Unknown]
  - Dehydration [Unknown]
  - Headache [Recovered/Resolved]
  - Ophthalmic migraine [Unknown]
  - Motion sickness [Unknown]
  - Malaise [Unknown]
  - Unevaluable event [Recovered/Resolved]

NARRATIVE: CASE EVENT DATE: 20210913
